FAERS Safety Report 8381445-4 (Version None)
Quarter: 2012Q2

REPORT INFORMATION
  Report Type: 
  Country: None (occurrence: None)
  Receive Date: 20120523
  Receipt Date: 20111215
  Transmission Date: 20120825
  Serious: Yes (Other)
  Sender: FDA-Public Use
  Company Number: US-ROCHE-1022728

PATIENT
  Sex: Male

DRUGS (15)
  1. DDAVP [Concomitant]
     Route: 058
  2. URSODIOL [Concomitant]
  3. MAGNESIUM OXIDE [Concomitant]
  4. FAMOTIDINE [Concomitant]
  5. NUTROPIN AQ [Suspect]
     Indication: HEPATIC CIRRHOSIS
     Dates: start: 20110601, end: 20111214
  6. ASPIRIN [Concomitant]
     Route: 048
  7. REGLAN [Concomitant]
     Indication: HYPERSENSITIVITY
  8. TESTOSTERONE CYPIONATE [Concomitant]
     Dosage: 200 MG/ML
  9. NUTROPIN AQ [Suspect]
     Dates: start: 20111215
  10. SYNTHROID [Concomitant]
     Dosage: 1 TABLET IN EVERY MORNING
  11. OMEGA-3 POLYUNSATURATED FATTY ACIDS [Concomitant]
  12. VITAMIN E [Concomitant]
     Dosage: 400 UNITS
  13. PROGRAF [Concomitant]
  14. DILANTIN [Concomitant]
     Dosage: ALLERGIES
  15. ZITHROMAX [Concomitant]

REACTIONS (1)
  - HEPATIC CIRRHOSIS [None]
